FAERS Safety Report 11766846 (Version 1)
Quarter: 2015Q4

REPORT INFORMATION
  Report Type: Spontaneous
  Country: US (occurrence: US)
  Receive Date: 20151123
  Receipt Date: 20151123
  Transmission Date: 20160304
  Serious: Yes (Hospitalization)
  Sender: FDA-Public Use
  Company Number: US-BEH-2015055902

PATIENT
  Sex: Male
  Weight: 68 kg

DRUGS (17)
  1. EPIPEN [Concomitant]
     Active Substance: EPINEPHRINE
  2. OTHER MINERAL SUPPLEMENTS [Concomitant]
  3. LUNESTA [Concomitant]
     Active Substance: ESZOPICLONE
  4. HIZENTRA [Suspect]
     Active Substance: HUMAN IMMUNOGLOBULIN G
     Route: 058
  5. XANAX [Concomitant]
     Active Substance: ALPRAZOLAM
  6. RILUTEK [Concomitant]
     Active Substance: RILUZOLE
  7. GLUTATHIONE CRYSTALS [Concomitant]
  8. HIZENTRA [Suspect]
     Active Substance: HUMAN IMMUNOGLOBULIN G
     Indication: IMMUNODEFICIENCY COMMON VARIABLE
     Route: 058
  9. LIDOCAINE/PRILOCAINE [Concomitant]
  10. TAMOXIFEN [Concomitant]
     Active Substance: TAMOXIFEN
  11. LEXAPRO [Concomitant]
     Active Substance: ESCITALOPRAM OXALATE
  12. SENNA-DOCUSATE [Concomitant]
  13. DIPHENHYDRAMINE. [Concomitant]
     Active Substance: DIPHENHYDRAMINE
  14. OTHER MINERAL SUPPLEMENTS [Concomitant]
  15. ACIDOPHILUS PROBIOTIC [Concomitant]
  16. PSYLLIUM HUSK [Concomitant]
     Active Substance: PSYLLIUM HUSK
  17. SYNTHROID [Concomitant]
     Active Substance: LEVOTHYROXINE SODIUM

REACTIONS (2)
  - Drug dose omission [Unknown]
  - Constipation [Recovered/Resolved]
